FAERS Safety Report 4534069-0 (Version None)
Quarter: 2004Q4

REPORT INFORMATION
  Report Type: 
  Country: None (occurrence: None)
  Receive Date: 20041221
  Receipt Date: 20041221
  Transmission Date: 20050328
  Serious: Yes (Other)
  Sender: FDA-Public Use
  Company Number: None

PATIENT
  Age: 41 Year
  Sex: Male
  Weight: 117 kg

DRUGS (10)
  1. NIFEDIPINE [Suspect]
  2. ABSORBASE TOP OINT [Concomitant]
  3. ALBUTEROL [Concomitant]
  4. BUPROPION HCL [Concomitant]
  5. FORMOTEROL FUMARATE [Concomitant]
  6. HYDROCORTISONE [Concomitant]
  7. LORATADINE [Concomitant]
  8. ADALAT CC [Concomitant]
  9. ACETAMINOPHEN [Concomitant]
  10. FLUTICASONE PROP [Concomitant]

REACTIONS (1)
  - HEADACHE [None]
